FAERS Safety Report 7481969-8 (Version None)
Quarter: 2011Q2

REPORT INFORMATION
  Report Type: 
  Country: None (occurrence: None)
  Receive Date: 20110516
  Receipt Date: 20110505
  Transmission Date: 20111010
  Serious: Yes (Hospitalization)
  Sender: FDA-Public Use
  Company Number: FR-MERCK-1105FRA00052

PATIENT
  Age: 71 Year
  Sex: Male
  Weight: 67 kg

DRUGS (7)
  1. ASPIRIN LYSINE [Concomitant]
     Route: 065
     Dates: start: 20020401
  2. ATORVASTATIN CALCIUM [Concomitant]
     Route: 065
     Dates: start: 20020401
  3. SITAGLIPTIN AND METFORMIN HYDROCHLORIDE [Suspect]
     Indication: TYPE 2 DIABETES MELLITUS
     Route: 048
     Dates: start: 20110428
  4. RAMIPRIL [Concomitant]
     Route: 065
     Dates: start: 20020401
  5. METFORMIN HCL [Suspect]
     Indication: TYPE 2 DIABETES MELLITUS
     Route: 048
     Dates: start: 20110421
  6. ATENOLOL [Concomitant]
     Indication: CARDIOMYOPATHY
     Route: 065
     Dates: start: 20020401
  7. ALLOPURINOL [Concomitant]
     Indication: HYPERURICAEMIA
     Route: 065
     Dates: start: 20101125

REACTIONS (1)
  - RENAL COLIC [None]
